FAERS Safety Report 13593407 (Version 1)
Quarter: 2017Q2

REPORT INFORMATION
  Report Type: Spontaneous
  Country: FR (occurrence: FR)
  Receive Date: 20170530
  Receipt Date: 20170530
  Transmission Date: 20170830
  Serious: Yes (Life-Threatening, Other)
  Sender: FDA-Public Use
  Company Number: FR-MYLANLABS-2017M1031634

PATIENT

DRUGS (4)
  1. SERESTA [Suspect]
     Active Substance: OXAZEPAM
     Indication: AGITATION
  2. SERESTA [Suspect]
     Active Substance: OXAZEPAM
     Indication: HALLUCINATION, VISUAL
     Dosage: 10 MG, TID
     Route: 048
     Dates: start: 20170507, end: 20170507
  3. RISPERIDONE MYLAN [Suspect]
     Active Substance: RISPERIDONE
     Indication: HALLUCINATION, VISUAL
     Dosage: 0.5 MG, QD
     Route: 048
     Dates: start: 20170505, end: 20170507
  4. PERINDOPRIL SANDOZ [Suspect]
     Active Substance: PERINDOPRIL
     Indication: HYPERTENSION
     Dosage: UNK
     Dates: start: 20170430, end: 20170507

REACTIONS (3)
  - Somnolence [Recovered/Resolved]
  - Hypotension [Recovered/Resolved]
  - Acute kidney injury [Recovered/Resolved]

NARRATIVE: CASE EVENT DATE: 20170507
